FAERS Safety Report 14571213 (Version 1)
Quarter: 2018Q1

REPORT INFORMATION
  Report Type: Spontaneous
  Country: PT (occurrence: PT)
  Receive Date: 20180226
  Receipt Date: 20180226
  Transmission Date: 20180509
  Serious: Yes (Hospitalization)
  Sender: FDA-Public Use
  Company Number: PT-FRESENIUS KABI-FK201801986

PATIENT
  Age: 8 Year
  Sex: Female

DRUGS (2)
  1. PARACETAMOL (MANUFACTURER UNKNOWN) [Suspect]
     Active Substance: ACETAMINOPHEN
     Indication: OROPHARYNGEAL PAIN
     Route: 065
  2. NIMESULIDE [Suspect]
     Active Substance: NIMESULIDE
     Indication: OROPHARYNGEAL PAIN
     Route: 065

REACTIONS (2)
  - Toxic epidermal necrolysis [Recovering/Resolving]
  - Stevens-Johnson syndrome [Recovering/Resolving]
